FAERS Safety Report 17137858 (Version 2)
Quarter: 2025Q4

REPORT INFORMATION
  Report Type: Spontaneous
  Country: EU (occurrence: EU)
  Receive Date: 20191211
  Receipt Date: 20251111
  Transmission Date: 20260117
  Serious: Yes (Other)
  Sender: AUROBINDO
  Company Number: EU-EMA-DD-20191129-BHARDWAJ_R-121112

PATIENT
  Age: 2 Year
  Sex: Female

DRUGS (1)
  1. AMOXICILLIN [Suspect]
     Active Substance: AMOXICILLIN
     Indication: Cheilitis
     Dosage: UNK
     Route: 065

REACTIONS (4)
  - Dermatitis bullous [Unknown]
  - Feeding disorder [Unknown]
  - Eczema herpeticum [Unknown]
  - Purpura [Unknown]
